FAERS Safety Report 23346057 (Version 1)
Quarter: 2023Q4

REPORT INFORMATION
  Report Type: Spontaneous
  Country: US (occurrence: None)
  Receive Date: 20231227
  Receipt Date: 20231227
  Transmission Date: 20240110
  Serious: No
  Sender: FDA-Public Use
  Company Number: None

PATIENT
  Age: 61 Year
  Sex: Female
  Weight: 65.77 kg

DRUGS (4)
  1. NAPROXEN [Suspect]
     Active Substance: NAPROXEN
  2. OLMESARTAN [Suspect]
     Active Substance: OLMESARTAN
  3. PRAVASTATIN [Suspect]
     Active Substance: PRAVASTATIN
  4. VITAMIN D [Suspect]
     Active Substance: VITAMIN D NOS

REACTIONS (3)
  - Haematuria [None]
  - Weight increased [None]
  - Renal mass [None]
